FAERS Safety Report 21312690 (Version 1)
Quarter: 2022Q3

REPORT INFORMATION
  Report Type: Spontaneous
  Country: US (occurrence: None)
  Receive Date: 20220908
  Receipt Date: 20220908
  Transmission Date: 20221027
  Serious: Yes (Life-Threatening, Hospitalization, Other)
  Sender: FDA-Public Use
  Company Number: None

PATIENT
  Age: 75 Year
  Sex: Male
  Weight: 75.3 kg

DRUGS (5)
  1. KEYTRUDA [Suspect]
     Active Substance: PEMBROLIZUMAB
     Indication: Renal cell carcinoma
     Dosage: OTHER FREQUENCY : EVERY 3 WEEKS;?
     Route: 042
     Dates: start: 20220812, end: 20220901
  2. REPAGLINIDE [Concomitant]
     Active Substance: REPAGLINIDE
  3. PRIMIDONE [Concomitant]
     Active Substance: PRIMIDONE
  4. DIAZEPAM [Concomitant]
     Active Substance: DIAZEPAM
  5. APIXABAN [Concomitant]
     Active Substance: APIXABAN

REACTIONS (4)
  - Myocarditis [None]
  - Right ventricular dysfunction [None]
  - Left ventricular dysfunction [None]
  - Immune system disorder [None]

NARRATIVE: CASE EVENT DATE: 20220902
